FAERS Safety Report 8112484-6 (Version None)
Quarter: 2012Q1

REPORT INFORMATION
  Report Type: 
  Country: None (occurrence: None)
  Receive Date: 20120203
  Receipt Date: 20120127
  Transmission Date: 20120608
  Serious: Yes (Hospitalization, Other)
  Sender: FDA-Public Use
  Company Number: US-BAYER-2011-074994

PATIENT
  Sex: Female
  Weight: 73 kg

DRUGS (1)
  1. YASMIN [Suspect]
     Indication: ACNE
     Dosage: UNK
     Dates: start: 20010101, end: 20040101

REACTIONS (3)
  - INJURY [None]
  - BUDD-CHIARI SYNDROME [None]
  - HEPATIC VEIN THROMBOSIS [None]
